FAERS Safety Report 6826429-X (Version None)
Quarter: 2010Q3

REPORT INFORMATION
  Report Type: 
  Country: None (occurrence: None)
  Receive Date: 20100709
  Receipt Date: 20100628
  Transmission Date: 20110219
  Serious: Yes (Other)
  Sender: FDA-Public Use
  Company Number: SE-JNJFOC-20090904867

PATIENT
  Age: 37 Year
  Sex: Female

DRUGS (13)
  1. INFLIXIMAB [Suspect]
     Indication: RHEUMATOID ARTHRITIS
     Route: 042
  2. INFLIXIMAB [Suspect]
     Route: 042
  3. INFLIXIMAB [Suspect]
     Dosage: 7TH DOSE
     Route: 042
  4. INFLIXIMAB [Suspect]
     Dosage: 18TH INFUSION
     Route: 042
  5. INFLIXIMAB [Suspect]
     Route: 042
  6. METHOTREXATE [Concomitant]
     Indication: RHEUMATOID ARTHRITIS
  7. BUDESONIDE [Concomitant]
  8. ALBUTEROL [Concomitant]
  9. FUROSEMIDE [Concomitant]
  10. LACTULOSE [Concomitant]
  11. PROTOVITA [Concomitant]
  12. INTRAVENOUS LIPIDS [Concomitant]
  13. NITROFURANTOIN [Concomitant]

REACTIONS (5)
  - CANDIDA TEST POSITIVE [None]
  - CERVICAL DYSPLASIA [None]
  - DRUG EXPOSURE BEFORE PREGNANCY [None]
  - PREMATURE LABOUR [None]
  - PREMATURE RUPTURE OF MEMBRANES [None]
